FAERS Safety Report 7995267-7 (Version None)
Quarter: 2011Q4

REPORT INFORMATION
  Report Type: 
  Country: None (occurrence: None)
  Receive Date: 20111220
  Receipt Date: 20111220
  Transmission Date: 20120403
  Serious: Yes (Life-Threatening)
  Sender: FDA-Public Use
  Company Number: None

PATIENT
  Age: 78 Year
  Sex: Female
  Weight: 52.163 kg

DRUGS (1)
  1. BENICAR [Suspect]
     Indication: HYPERTENSION
     Dosage: 1
     Route: 048
     Dates: start: 20040702, end: 20111109

REACTIONS (3)
  - DIARRHOEA [None]
  - DEHYDRATION [None]
  - VOMITING [None]
